FAERS Safety Report 21923416 (Version 2)
Quarter: 2025Q2

REPORT INFORMATION
  Report Type: Spontaneous
  Country: US (occurrence: US)
  Receive Date: 20230129
  Receipt Date: 20250528
  Transmission Date: 20250717
  Serious: No
  Sender: CIPLA
  Company Number: US-CIPLA LTD.-2022US06267

PATIENT

DRUGS (4)
  1. ALBUTEROL [Suspect]
     Active Substance: ALBUTEROL
     Indication: Asthma
     Dates: start: 2021
  2. ALBUTEROL [Suspect]
     Active Substance: ALBUTEROL
     Dosage: 2 DOSAGE FORM, TID (2 PUFFS 3 TIMES A DAY AS NEEDED)
     Dates: start: 20221014
  3. ZYRTEC [Concomitant]
     Active Substance: CETIRIZINE HYDROCHLORIDE
     Indication: Hypersensitivity
     Dosage: 5 MILLILITER, QD
     Route: 065
     Dates: start: 20221009
  4. FLOVENT HFA [Concomitant]
     Active Substance: FLUTICASONE PROPIONATE
     Indication: Asthma
     Dosage: 2 DOSAGE FORM, BID (MAY-YEAR UNSPECIFIED)
     Route: 065

REACTIONS (9)
  - Incorrect dose administered by device [Unknown]
  - Device delivery system issue [Unknown]
  - Device defective [Unknown]
  - Device malfunction [Unknown]
  - Drug dose omission by device [Unknown]
  - Device maintenance issue [Unknown]
  - Product cleaning inadequate [Unknown]
  - Product storage error [Unknown]
  - Device information output issue [Unknown]

NARRATIVE: CASE EVENT DATE: 20221001
